FAERS Safety Report 6905919-5 (Version None)
Quarter: 2010Q3

REPORT INFORMATION
  Report Type: 
  Country: None (occurrence: None)
  Receive Date: 20100708
  Receipt Date: 20100422
  Transmission Date: 20110219
  Serious: Yes (Other)
  Sender: FDA-Public Use
  Company Number: 2010052378

PATIENT
  Age: 44 Year
  Sex: Female
  Weight: 81 kg

DRUGS (2)
  1. CHANTIX [Suspect]
     Indication: SMOKING CESSATION THERAPY
     Dosage: ORAL, 1 MG, 2X/DAY
     Dates: start: 20090101, end: 20090101
  2. CHANTIX [Suspect]
     Indication: SMOKING CESSATION THERAPY
     Dosage: ORAL, 1 MG, 2X/DAY
     Dates: start: 20100401, end: 20100401

REACTIONS (1)
  - CHEST PAIN [None]
